FAERS Safety Report 22220015 (Version 2)
Quarter: 2023Q2

REPORT INFORMATION
  Report Type: Report from Study
  Country: US (occurrence: US)
  Receive Date: 20230417
  Receipt Date: 20230420
  Transmission Date: 20230721
  Serious: Yes (Other)
  Sender: FDA-Public Use
  Company Number: US-ABBVIE-4730554

PATIENT
  Sex: Female

DRUGS (1)
  1. SKYRIZI [Suspect]
     Active Substance: RISANKIZUMAB-RZAA
     Indication: Product used for unknown indication
     Route: 058
     Dates: start: 2022

REACTIONS (4)
  - Skin cancer [Unknown]
  - Skin hypertrophy [Unknown]
  - Skin wrinkling [Not Recovered/Not Resolved]
  - Blindness [Not Recovered/Not Resolved]
